FAERS Safety Report 8579644-1 (Version None)
Quarter: 2012Q3

REPORT INFORMATION
  Report Type: 
  Country: None (occurrence: None)
  Receive Date: 20120808
  Receipt Date: 20120803
  Transmission Date: 20120928
  Serious: Yes (Other)
  Sender: FDA-Public Use
  Company Number: PHHY2012AU066778

PATIENT
  Age: 50 Year
  Sex: Male

DRUGS (2)
  1. AMLODIPINE [Suspect]
     Dosage: 5 MG, QD
     Route: 048
  2. AMLODIPINE [Suspect]
     Dosage: 10 MG, DAILY DOSE
     Route: 048

REACTIONS (4)
  - NASAL CONGESTION [None]
  - SWOLLEN TONGUE [None]
  - DYSPNOEA [None]
  - DRY MOUTH [None]
